FAERS Safety Report 6615483-6 (Version None)
Quarter: 2010Q1

REPORT INFORMATION
  Report Type: 
  Country: None (occurrence: None)
  Receive Date: 20100305
  Receipt Date: 20100222
  Transmission Date: 20100710
  Serious: Yes (Other)
  Sender: FDA-Public Use
  Company Number: US-ROCHE-679793

PATIENT

DRUGS (4)
  1. BEVACIZUMAB [Suspect]
     Dosage: DOSE LEVEL REPORTED: 158 MG/KG.
     Route: 065
  2. TRASTUZUMAB [Suspect]
     Dosage: DOSE LEVEL REPORTED: 08 MG/KG
     Route: 065
  3. CARBOPLATIN [Suspect]
     Dosage: DOSE LEVEL REPORTED: 06 AUC.
     Route: 065
  4. DOCETAXEL [Suspect]
     Dosage: DOSE LEVEL REPORTED: 75 MG/M^2.
     Route: 065

REACTIONS (1)
  - MEDICAL DEVICE COMPLICATION [None]
